FAERS Safety Report 20811635 (Version 8)
Quarter: 2023Q1

REPORT INFORMATION
  Report Type: Spontaneous
  Country: JP (occurrence: JP)
  Receive Date: 20220510
  Receipt Date: 20230118
  Transmission Date: 20230417
  Serious: Yes (Death, Life-Threatening, Hospitalization, Other)
  Sender: FDA-Public Use
  Company Number: JP-BRISTOL-MYERS SQUIBB COMPANY-2022-020434

PATIENT
  Age: 48 Year
  Sex: Female
  Weight: 45.8 kg

DRUGS (20)
  1. YERVOY [Suspect]
     Active Substance: IPILIMUMAB
     Indication: Colon cancer
     Dosage: 50 MG
     Route: 041
     Dates: start: 20211118, end: 20211118
  2. YERVOY [Suspect]
     Active Substance: IPILIMUMAB
  3. YERVOY [Suspect]
     Active Substance: IPILIMUMAB
  4. OPDIVO [Suspect]
     Active Substance: NIVOLUMAB
     Indication: Colon cancer
     Dosage: UNK
     Route: 041
     Dates: start: 20211118, end: 20211118
  5. OPDIVO [Suspect]
     Active Substance: NIVOLUMAB
  6. DECADRON [Concomitant]
     Active Substance: DEXAMETHASONE
     Indication: Product used for unknown indication
     Route: 048
  7. TEPRENONE [Concomitant]
     Active Substance: TEPRENONE
     Indication: Product used for unknown indication
     Dosage: 3 IN 1 DAY
     Route: 048
  8. TEPRENONE [Concomitant]
     Active Substance: TEPRENONE
     Dosage: 50 MG, Q8H, 3 IN 1 DAY
     Route: 048
  9. MYTELASE [Concomitant]
     Active Substance: AMBENONIUM CHLORIDE
     Indication: Product used for unknown indication
     Route: 048
  10. MYTELASE [Concomitant]
     Active Substance: AMBENONIUM CHLORIDE
     Dosage: 10 MG, Q12H
     Route: 048
  11. PROGRAF [Concomitant]
     Active Substance: TACROLIMUS
     Indication: Product used for unknown indication
     Dosage: 3 IN 1 DAY
     Route: 048
  12. PROGRAF [Concomitant]
     Active Substance: TACROLIMUS
     Dosage: 1 MG, Q8H, 3 IN 1 DAY
     Route: 048
  13. ALINAMIN-F [FURSULTIAMINE HYDROCHLORIDE] [Concomitant]
     Indication: Product used for unknown indication
     Dosage: 3 IN 1 DAY
     Route: 048
  14. ELDECALCITOL [Concomitant]
     Active Substance: ELDECALCITOL
     Indication: Product used for unknown indication
     Route: 048
  15. ELDECALCITOL [Concomitant]
     Active Substance: ELDECALCITOL
     Dosage: 0.75 UG, EVERYDAY
     Route: 048
  16. ITOPRIDE [Concomitant]
     Active Substance: ITOPRIDE
     Indication: Product used for unknown indication
     Dosage: 3 IN 1 DAY
     Route: 048
  17. BIO-THREE [Concomitant]
     Active Substance: HERBALS
     Indication: Product used for unknown indication
     Route: 048
  18. BIO-THREE [Concomitant]
     Active Substance: HERBALS
     Dosage: 6 DF, Q8H, 3 IN 1 DAY
     Route: 048
  19. MOSAPRIDE [Concomitant]
     Active Substance: MOSAPRIDE
     Indication: Product used for unknown indication
     Dosage: 3 IN 1 DAY
     Route: 048
  20. UNSPECIFIED INGREDIENT [Concomitant]
     Active Substance: UNSPECIFIED INGREDIENT
     Indication: Myasthenia gravis
     Route: 048
     Dates: start: 2002

REACTIONS (3)
  - Pneumonia [Fatal]
  - Myasthenia gravis [Fatal]
  - Immune-mediated myositis [Unknown]

NARRATIVE: CASE EVENT DATE: 20211126
